FAERS Safety Report 22625160 (Version 1)
Quarter: 2023Q2

REPORT INFORMATION
  Report Type: Spontaneous
  Country: US (occurrence: None)
  Receive Date: 20230620
  Receipt Date: 20230620
  Transmission Date: 20230722
  Serious: Yes (Hospitalization, Disabling, Other)
  Sender: FDA-Public Use
  Company Number: None

PATIENT
  Age: 32 Year
  Sex: Female
  Weight: 71.55 kg

DRUGS (6)
  1. DECADRON [Suspect]
     Active Substance: DEXAMETHASONE
     Indication: Migraine
     Dates: start: 20230425, end: 20230425
  2. BENADRYL [Suspect]
     Active Substance: DIPHENHYDRAMINE HYDROCHLORIDE
  3. METOCLOPRAMIDE HYDROCHLORIDE [Suspect]
     Active Substance: METOCLOPRAMIDE HYDROCHLORIDE
  4. VITAMIN D NOS [Concomitant]
     Active Substance: VITAMIN D NOS
  5. VITAMIN C [Concomitant]
     Active Substance: ASCORBIC ACID
  6. MAGNESIUM [Concomitant]
     Active Substance: MAGNESIUM

REACTIONS (11)
  - Burning sensation [None]
  - Tachycardia [None]
  - Nausea [None]
  - Cerebrovascular accident [None]
  - Insomnia [None]
  - Muscle twitching [None]
  - Atrial fibrillation [None]
  - Muscular weakness [None]
  - Gastrointestinal disorder [None]
  - Urinary tract disorder [None]
  - Pain [None]

NARRATIVE: CASE EVENT DATE: 20230425
